FAERS Safety Report 10634576 (Version 3)
Quarter: 2015Q2

REPORT INFORMATION
  Report Type: Spontaneous
  Country: JP (occurrence: JP)
  Receive Date: 20141205
  Receipt Date: 20150408
  Transmission Date: 20150821
  Serious: Yes (Life-Threatening)
  Sender: FDA-Public Use
  Company Number: JP-ASTRAZENECA-2014SE91693

PATIENT
  Age: 76 Year
  Sex: Female

DRUGS (1)
  1. CARBOCAINE [Suspect]
     Active Substance: MEPIVACAINE HYDROCHLORIDE
     Indication: EPIDURAL ANAESTHESIA
     Route: 008
     Dates: start: 201408, end: 201408

REACTIONS (1)
  - Pulseless electrical activity [Recovered/Resolved]

NARRATIVE: CASE EVENT DATE: 201408
